FAERS Safety Report 6643411-6 (Version None)
Quarter: 2010Q1

REPORT INFORMATION
  Report Type: 
  Country: None (occurrence: None)
  Receive Date: 20100319
  Receipt Date: 20100308
  Transmission Date: 20100710
  Serious: Yes (Hospitalization)
  Sender: FDA-Public Use
  Company Number: US-WATSON-2010-02681

PATIENT
  Age: 35 Year
  Sex: Female

DRUGS (2)
  1. BACLOFEN (WATSON LABORATORIES) [Suspect]
     Indication: MUSCLE SPASTICITY
     Dosage: 785 UG, DAILY
     Route: 037
  2. BACLOFEN (WATSON LABORATORIES) [Suspect]
     Dosage: 795 UG, DAILY
     Route: 037

REACTIONS (2)
  - PRE-ECLAMPSIA [None]
  - RESPIRATORY DISTRESS [None]
